FAERS Safety Report 9129853 (Version 2)
Quarter: 2013Q1

REPORT INFORMATION
  Report Type: Spontaneous
  Country: ES (occurrence: ES)
  Receive Date: 20130228
  Receipt Date: 20130322
  Transmission Date: 20140127
  Serious: Yes (Hospitalization)
  Sender: FDA-Public Use
  Company Number: ES-ELI_LILLY_AND_COMPANY-ES201301010490

PATIENT
  Age: 75 Year
  Sex: Female

DRUGS (3)
  1. FORSTEO [Suspect]
     Indication: OSTEOPOROSIS
     Dosage: 20 UG, UNKNOWN
     Route: 058
     Dates: start: 200710
  2. FORSTEO [Suspect]
     Dosage: 20 UG, UNKNOWN
     Route: 058
  3. CALCIUM [Concomitant]
     Dosage: UNK, UNKNOWN
     Route: 065

REACTIONS (3)
  - Road traffic accident [Unknown]
  - Head injury [Unknown]
  - Contusion [Recovering/Resolving]
